FAERS Safety Report 20292197 (Version 3)
Quarter: 2022Q1

REPORT INFORMATION
  Report Type: Spontaneous
  Country: JP (occurrence: JP)
  Receive Date: 20220104
  Receipt Date: 20220124
  Transmission Date: 20220423
  Serious: Yes (Hospitalization)
  Sender: FDA-Public Use
  Company Number: JP-PFIZER INC-202101836637

PATIENT
  Age: 52 Year
  Sex: Female

DRUGS (4)
  1. HYDROXYZINE HYDROCHLORIDE [Suspect]
     Active Substance: HYDROXYZINE HYDROCHLORIDE
     Indication: Pharyngeal oedema
     Dosage: 25 MG
     Route: 042
     Dates: start: 20211217, end: 20211218
  2. SOLU-MEDROL [Suspect]
     Active Substance: METHYLPREDNISOLONE SODIUM SUCCINATE
     Indication: Pharyngeal oedema
     Dosage: 125 MG
     Route: 042
     Dates: start: 20211217, end: 20211218
  3. EPINEPHRINE [Suspect]
     Active Substance: EPINEPHRINE
     Indication: Pharyngeal oedema
     Dosage: 0.3 MG, SINGLE
     Route: 030
     Dates: start: 20211217, end: 20211217
  4. SODIUM CHLORIDE [Concomitant]
     Active Substance: SODIUM CHLORIDE
     Dosage: 100 ML
     Route: 042
     Dates: start: 20211217

REACTIONS (2)
  - Heart rate increased [Recovering/Resolving]
  - Pyrexia [Recovered/Resolved]

NARRATIVE: CASE EVENT DATE: 20211217
